FAERS Safety Report 8408477-1 (Version None)
Quarter: 2012Q2

REPORT INFORMATION
  Report Type: 
  Country: None (occurrence: None)
  Receive Date: 20120604
  Receipt Date: 20120529
  Transmission Date: 20120825
  Serious: Yes (Disabling)
  Sender: FDA-Public Use
  Company Number: GB-ROCHE-1006985

PATIENT
  Sex: Female

DRUGS (10)
  1. BENDROFLUAZIDE [Concomitant]
  2. DICLOFENAC SODIUM [Concomitant]
  3. ALENDRONATE SODIUM [Concomitant]
  4. ETORICOXIB [Concomitant]
  5. OMEPRAZOLE [Concomitant]
  6. MABTHERA [Suspect]
     Indication: RHEUMATOID ARTHRITIS
     Dosage: DRUG DISCONTINUED
     Dates: start: 20110211
  7. TRAMADOL HCL [Concomitant]
  8. PREDNISOLONE [Concomitant]
  9. ATENOLOL [Concomitant]
  10. MABTHERA [Suspect]
     Dosage: RESTARTED
     Dates: start: 20110909, end: 20110923

REACTIONS (1)
  - VASCULITIS [None]
